FAERS Safety Report 6070255-9 (Version None)
Quarter: 2009Q1

REPORT INFORMATION
  Report Type: 
  Country: None (occurrence: None)
  Receive Date: 20090209
  Receipt Date: 20090130
  Transmission Date: 20090719
  Serious: Yes (Hospitalization)
  Sender: FDA-Public Use
  Company Number: PHHO2009DE01683

PATIENT
  Sex: Female
  Weight: 69 kg

DRUGS (5)
  1. ZOLEDRONIC ACID [Suspect]
     Indication: BREAST CANCER
     Dosage: 4 MG, UNK
     Route: 042
     Dates: start: 20080918, end: 20080918
  2. VITAMIN D [Concomitant]
  3. CALCIUM [Concomitant]
  4. NITRENDIPIN [Concomitant]
     Indication: HYPERTENSION
  5. ARIMIDEX [Concomitant]
     Indication: HORMONE LEVEL ABNORMAL

REACTIONS (4)
  - INFLAMMATION [None]
  - PAIN [None]
  - TOOTH DISORDER [None]
  - TOOTH EXTRACTION [None]
